FAERS Safety Report 4929546-4 (Version None)
Quarter: 2006Q1

REPORT INFORMATION
  Report Type: 
  Country: None (occurrence: None)
  Receive Date: 20060223
  Receipt Date: 20060210
  Transmission Date: 20060701
  Serious: Yes (Hospitalization, Other)
  Sender: FDA-Public Use
  Company Number: 2006021370

PATIENT
  Age: 71 Year
  Sex: Female

DRUGS (9)
  1. LIPITOR [Suspect]
     Indication: BLOOD CHOLESTEROL INCREASED
     Dosage: 20 MEQ (20 MG, 1 IN 1 D), ORAL
     Route: 048
     Dates: start: 20040101
  2. DETROL LA [Suspect]
     Indication: HYPERTONIC BLADDER
     Dosage: ORAL
     Route: 048
     Dates: start: 20030101
  3. VITAMINS (VITAMINS) [Concomitant]
  4. CALCIUM (CALCIUM) [Concomitant]
  5. LISINOPRIL [Concomitant]
  6. NEXIUM [Concomitant]
  7. LEXAPRO [Concomitant]
  8. BACTRIM [Concomitant]
  9. DITROPAN [Concomitant]

REACTIONS (8)
  - ANXIETY [None]
  - ARTHROPATHY [None]
  - ASTHMA [None]
  - ATRIAL FIBRILLATION [None]
  - BLOOD PRESSURE INCREASED [None]
  - BODY HEIGHT DECREASED [None]
  - PNEUMONIA [None]
  - WRONG TECHNIQUE IN DRUG USAGE PROCESS [None]
